FAERS Safety Report 4450264-3 (Version None)
Quarter: 2004Q3

REPORT INFORMATION
  Report Type: 
  Country: None (occurrence: None)
  Receive Date: 20040914
  Receipt Date: 20040901
  Transmission Date: 20050211
  Serious: Yes (Hospitalization, Other)
  Sender: FDA-Public Use
  Company Number: 2004061470

PATIENT
  Age: 91 Year
  Sex: Female

DRUGS (6)
  1. ATARAX [Suspect]
     Indication: AGITATION
     Dosage: ORAL
     Route: 048
     Dates: end: 20040418
  2. PAROXETINE HCL [Suspect]
     Indication: AGITATION
     Dosage: ORAL
     Route: 048
     Dates: end: 20040418
  3. THEOPHYLLINE [Suspect]
     Indication: ILL-DEFINED DISORDER
     Dosage: ORAL
     Route: 048
     Dates: end: 20040418
  4. DIGOXIN [Concomitant]
  5. NITROGLYCERIN [Concomitant]
  6. BUDESONIDE (BUDESONIDE) [Concomitant]

REACTIONS (7)
  - AGITATION [None]
  - ANTASTHMATIC DRUG LEVEL ABOVE THERAPEUTIC [None]
  - CONFUSIONAL STATE [None]
  - DISTURBANCE IN ATTENTION [None]
  - HYPERCAPNIA [None]
  - HYPOXIA [None]
  - SOMNOLENCE [None]
